FAERS Safety Report 9295869 (Version 1)
Quarter: 2013Q2

REPORT INFORMATION
  Report Type: Report from Study
  Country: BR (occurrence: BR)
  Receive Date: 20130517
  Receipt Date: 20130517
  Transmission Date: 20140414
  Serious: Yes (Other)
  Sender: FDA-Public Use
  Company Number: BR-ABBOTT-13P-020-1064621-00

PATIENT
  Sex: Female
  Weight: 65 kg

DRUGS (13)
  1. HUMIRA [Suspect]
     Indication: RHEUMATOID ARTHRITIS
     Route: 058
     Dates: start: 2010
  2. TRAMADOL/PARACETAMOL [Concomitant]
     Indication: PAIN
     Dosage: 20MG/ 360MG
     Route: 048
     Dates: start: 2011
  3. PHOSPHATE/CODEINE/PARACETAMOL [Concomitant]
     Indication: PAIN
     Dosage: 30MG/ 360MG
     Route: 048
     Dates: start: 2011
  4. METHOTREXATE [Concomitant]
     Indication: RHEUMATOID ARTHRITIS
     Route: 048
     Dates: start: 2000
  5. METHOTREXATE [Concomitant]
     Dates: start: 201304
  6. FOLIC ACID [Concomitant]
     Indication: RHEUMATOID ARTHRITIS
     Route: 048
     Dates: start: 2000
  7. CORTISONE [Concomitant]
     Indication: GASTRIC DISORDER
     Route: 048
     Dates: start: 2000
  8. MICARDIS HCT [Concomitant]
     Indication: HYPERTENSION
     Dosage: 40/12.5MG
     Route: 048
     Dates: start: 1990
  9. METFORMIN [Concomitant]
     Indication: DIABETES MELLITUS
     Route: 048
     Dates: start: 2009
  10. GLIMEPIRIDE [Concomitant]
     Indication: DIABETES MELLITUS
     Route: 048
     Dates: start: 2009
  11. OMEPRAZOLE [Concomitant]
     Indication: ABDOMINAL PAIN UPPER
     Route: 048
     Dates: start: 2000
  12. PREDNISONE [Concomitant]
     Indication: RHEUMATOID ARTHRITIS
     Route: 048
     Dates: start: 2000
  13. PREDNISONE [Concomitant]
     Dates: start: 201304

REACTIONS (8)
  - Syncope [Recovered/Resolved]
  - Memory impairment [Recovering/Resolving]
  - Arterial disorder [Unknown]
  - Foot deformity [Recovering/Resolving]
  - Bunion [Not Recovered/Not Resolved]
  - Rheumatoid arthritis [Recovered/Resolved]
  - Blood urine present [Not Recovered/Not Resolved]
  - Pain in extremity [Unknown]
